FAERS Safety Report 18400161 (Version 1)
Quarter: 2020Q4

REPORT INFORMATION
  Report Type: Spontaneous
  Country: US (occurrence: US)
  Receive Date: 20201019
  Receipt Date: 20201019
  Transmission Date: 20210114
  Serious: No
  Sender: FDA-Public Use
  Company Number: US-ALLERGAN-1950464US

PATIENT
  Age: 49 Year
  Sex: Female

DRUGS (24)
  1. COZAAR [Concomitant]
     Active Substance: LOSARTAN POTASSIUM
  2. VRAYLAR [Suspect]
     Active Substance: CARIPRAZINE
     Dosage: 3 MG
     Route: 048
     Dates: start: 201907, end: 20190807
  3. COLACE [Concomitant]
     Active Substance: DOCUSATE SODIUM
  4. MIRALAX [Concomitant]
     Active Substance: POLYETHYLENE GLYCOL 3350
     Dosage: UNK, PRN
  5. TRINTELLIX [Concomitant]
     Active Substance: VORTIOXETINE HYDROBROMIDE
  6. VITAMIN D 2000 [Concomitant]
     Active Substance: VITAMIN D NOS
  7. VICTOZA [Concomitant]
     Active Substance: LIRAGLUTIDE
  8. ALPRAZOLAM. [Concomitant]
     Active Substance: ALPRAZOLAM
     Dosage: HALF OF A PILL EVERY 8 HOURS WHEN NECESSARY
     Route: 048
  9. PRAZOSIN. [Concomitant]
     Active Substance: PRAZOSIN
     Dosage: UNK, QHS
  10. ATORVASTATIN [Concomitant]
     Active Substance: ATORVASTATIN
  11. VRAYLAR [Suspect]
     Active Substance: CARIPRAZINE
     Indication: SCHIZOAFFECTIVE DISORDER
     Dosage: 6 MG, QD
     Route: 048
     Dates: start: 20190807
  12. VRAYLAR [Suspect]
     Active Substance: CARIPRAZINE
     Dosage: 1.5 MG
     Route: 048
     Dates: start: 20190710, end: 201907
  13. BUPROPION. [Concomitant]
     Active Substance: BUPROPION
     Dosage: 150 MG, QAM
     Route: 048
  14. COMBIVENT [Concomitant]
     Active Substance: ALBUTEROL SULFATE\IPRATROPIUM BROMIDE
     Dosage: UNK, PRN
  15. LAMICTAL [Concomitant]
     Active Substance: LAMOTRIGINE
     Dosage: 200 MG, BID
  16. IBUPROFEN. [Concomitant]
     Active Substance: IBUPROFEN
     Dosage: 600 MG, QD
  17. PRILOSEC [Concomitant]
     Active Substance: OMEPRAZOLE MAGNESIUM
  18. VRAYLAR [Suspect]
     Active Substance: CARIPRAZINE
     Dosage: 4.5 MG
  19. ASPIRIN. [Concomitant]
     Active Substance: ASPIRIN
  20. LOSARTAN. [Concomitant]
     Active Substance: LOSARTAN
  21. TRAZODONE [Concomitant]
     Active Substance: TRAZODONE HYDROCHLORIDE
     Dosage: 300 MG, QHS
  22. FLONASE [Concomitant]
     Active Substance: FLUTICASONE PROPIONATE
  23. MULTIVITAMIN [Concomitant]
     Active Substance: VITAMINS
  24. SINGULAIR [Concomitant]
     Active Substance: MONTELUKAST SODIUM

REACTIONS (2)
  - Pain in extremity [Recovering/Resolving]
  - Back pain [Recovering/Resolving]

NARRATIVE: CASE EVENT DATE: 201908
